FAERS Safety Report 7825876-7 (Version None)
Quarter: 2011Q4

REPORT INFORMATION
  Report Type: 
  Country: None (occurrence: None)
  Receive Date: 20111019
  Receipt Date: 20110921
  Transmission Date: 20120403
  Serious: Yes (Other)
  Sender: FDA-Public Use
  Company Number: PHHY2011JP56378

PATIENT

DRUGS (1)
  1. SANDIMMUNE [Suspect]
     Indication: INTERSTITIAL LUNG DISEASE
     Route: 041

REACTIONS (2)
  - JAUNDICE [None]
  - IMMUNOSUPPRESSANT DRUG LEVEL INCREASED [None]
